FAERS Safety Report 16810396 (Version 2)
Quarter: 2019Q4

REPORT INFORMATION
  Report Type: Spontaneous
  Country: US (occurrence: US)
  Receive Date: 20190916
  Receipt Date: 20191202
  Transmission Date: 20200122
  Serious: No
  Sender: FDA-Public Use
  Company Number: US-PFIZER INC-2014161308

PATIENT
  Age: 64 Year
  Sex: Male
  Weight: 117.91 kg

DRUGS (23)
  1. METFORMIN [Concomitant]
     Active Substance: METFORMIN HYDROCHLORIDE
     Indication: DIABETES MELLITUS
     Dosage: UNK, 2X/DAY (850 2X)
     Dates: start: 2007
  2. ROSUVASTATIN. [Concomitant]
     Active Substance: ROSUVASTATIN
     Indication: BLOOD CHOLESTEROL ABNORMAL
     Dosage: UNK UNK, 1X/DAY,(20 1X)
     Dates: start: 2014
  3. EFFEXOR [Concomitant]
     Active Substance: VENLAFAXINE HYDROCHLORIDE
     Indication: DEPRESSION
     Dosage: UNK, 1X/DAY,(150 1X)
     Dates: start: 2008
  4. MS CONTIN [Concomitant]
     Active Substance: MORPHINE SULFATE
     Indication: PAIN
     Dosage: 15 MG, 1 TABLET EVERY 12 HOURS
     Dates: start: 20140501, end: 2017
  5. COUMADIN [Concomitant]
     Active Substance: WARFARIN SODIUM
     Dosage: 2 MG, 3X/DAY
     Route: 048
     Dates: end: 2016
  6. METFORMIN HYDROCHLORIDE + GLYBURIDE [Concomitant]
     Active Substance: GLYBURIDE\METFORMIN HYDROCHLORIDE
     Indication: DIABETES MELLITUS
     Dosage: UNK, 2X/DAY
     Route: 048
     Dates: start: 20140501
  7. CLONAZEPAM. [Concomitant]
     Active Substance: CLONAZEPAM
     Indication: SLEEP DISORDER
     Dosage: 2 MG, UNK
     Route: 048
  8. GLIMEPIRIDE. [Concomitant]
     Active Substance: GLIMEPIRIDE
     Indication: DIABETES MELLITUS
     Dosage: UNK UNK, 2X/DAY,(1 1/2 2X)
     Dates: start: 2011
  9. FENOFIBRATE. [Concomitant]
     Active Substance: FENOFIBRATE
     Indication: BLOOD CHOLESTEROL ABNORMAL
     Dosage: UNK UNK, 1X/DAY,(160 1X)
     Dates: start: 2014
  10. LISINOPRIL. [Concomitant]
     Active Substance: LISINOPRIL
     Indication: HYPERTENSION
     Dosage: 20 MG, UNK
     Route: 048
  11. CLONAZEPAM. [Concomitant]
     Active Substance: CLONAZEPAM
     Dosage: UNK UNK, 1X/DAY,(2 1X)
     Dates: start: 2015
  12. MECLIZINE HCI [Concomitant]
     Dosage: UNK UNK, 3X/DAY,(25 3X)
     Dates: start: 1998
  13. SOMA [Concomitant]
     Active Substance: CARISOPRODOL
     Indication: MUSCLE SPASMS
     Dosage: 350 MG, 3XDAY AS NEEDED
     Dates: start: 20140501, end: 2017
  14. OXYCODONE HCI [Concomitant]
     Indication: PAIN
     Dosage: 10 MG, QID AS NEEDED (PRN)
     Dates: start: 20140501
  15. OXYCODONE HCI [Concomitant]
     Dosage: UNK, 1X/DAY,(2 1X)
     Dates: end: 2017
  16. LYRICA [Suspect]
     Active Substance: PREGABALIN
     Indication: OSTEOARTHRITIS
     Dosage: 200 MG, 3X/DAY
     Dates: start: 2009
  17. LYRICA [Suspect]
     Active Substance: PREGABALIN
     Indication: DIABETIC NEUROPATHY
  18. PRADAXA [Concomitant]
     Active Substance: DABIGATRAN ETEXILATE MESYLATE
     Indication: ANTICOAGULANT THERAPY
     Dosage: UNK UNK, 2X/DAY,(150 2X)
     Dates: start: 2011
  19. IBUPROFEN. [Concomitant]
     Active Substance: IBUPROFEN
     Indication: PAIN
     Dosage: UNK UNK, 3X/DAY,(600 3X)
     Dates: start: 2019
  20. BACLOFEN. [Concomitant]
     Active Substance: BACLOFEN
     Indication: PAIN
     Dosage: UNK UNK, 3X/DAY,(20 3X)
     Dates: start: 2017
  21. LYRICA [Suspect]
     Active Substance: PREGABALIN
     Indication: NEUROPATHY PERIPHERAL
     Dosage: 200 MG, 3X/DAY
     Route: 048
     Dates: start: 20140501
  22. LISINOPRIL. [Concomitant]
     Active Substance: LISINOPRIL
     Dosage: UNK, 1X/DAY (20 1X)
     Dates: start: 1998
  23. MECLIZINE HCI [Concomitant]
     Dosage: 25 MG, 3X/DAY
     Route: 048

REACTIONS (1)
  - Withdrawal syndrome [Recovered/Resolved]
